FAERS Safety Report 8087316-5 (Version None)
Quarter: 2012Q1

REPORT INFORMATION
  Report Type: 
  Country: None (occurrence: None)
  Receive Date: 20120128
  Receipt Date: 20110426
  Transmission Date: 20120608
  Serious: No
  Sender: FDA-Public Use
  Company Number: US-ABBOTT-11P-163-0722168-00

PATIENT
  Sex: Male
  Weight: 113.5 kg

DRUGS (2)
  1. HUMIRA [Suspect]
     Indication: PSORIASIS
     Dates: start: 20100528, end: 20110315
  2. UNKNOWN MEDICATION [Concomitant]
     Indication: MIGRAINE

REACTIONS (2)
  - WEIGHT INCREASED [None]
  - WEIGHT DECREASED [None]
